FAERS Safety Report 7603698-X (Version None)
Quarter: 2011Q3

REPORT INFORMATION
  Report Type: 
  Country: None (occurrence: None)
  Receive Date: 20110711
  Receipt Date: 20110711
  Transmission Date: 20111222
  Serious: Yes (Life-Threatening, Hospitalization)
  Sender: FDA-Public Use
  Company Number: None

PATIENT
  Age: 53 Year
  Sex: Male
  Weight: 104.3273 kg

DRUGS (1)
  1. CELEBREX [Suspect]
     Indication: INFLAMMATION
     Dosage: 1 1 PO (ONE DOSE)
     Route: 048
     Dates: start: 20110706, end: 20110706

REACTIONS (1)
  - ANAPHYLACTIC REACTION [None]
